FAERS Safety Report 13724715 (Version 2)
Quarter: 2017Q3

REPORT INFORMATION
  Report Type: Report from Study
  Country: US (occurrence: US)
  Receive Date: 20170706
  Receipt Date: 20170707
  Transmission Date: 20171127
  Serious: Yes (Other)
  Sender: FDA-Public Use
  Company Number: US-BAYER-2017-124473

PATIENT
  Sex: Female

DRUGS (4)
  1. MIRENA [Suspect]
     Active Substance: LEVONORGESTREL
     Indication: CONTRACEPTION
  2. ISOTRETINOIN [Concomitant]
     Active Substance: ISOTRETINOIN
  3. ACCUTANE [Concomitant]
     Active Substance: ISOTRETINOIN
  4. MIRENA [Suspect]
     Active Substance: LEVONORGESTREL
     Indication: MENORRHAGIA
     Dosage: 20 MCG/24HR, CONT
     Route: 015
     Dates: start: 201609

REACTIONS (5)
  - Ovarian cyst [None]
  - Fallopian tube abscess [None]
  - Genital haemorrhage [Not Recovered/Not Resolved]
  - Pain [None]
  - Pelvic pain [None]

NARRATIVE: CASE EVENT DATE: 2016
